FAERS Safety Report 14352065 (Version 4)
Quarter: 2018Q3

REPORT INFORMATION
  Report Type: Report from Study
  Country: US (occurrence: US)
  Receive Date: 20180104
  Receipt Date: 20180914
  Transmission Date: 20181010
  Serious: No
  Sender: FDA-Public Use
  Company Number: US-ALEXION PHARMACEUTICALS INC-A201714848

PATIENT
  Age: 27 Year
  Sex: Male

DRUGS (3)
  1. SOLIRIS [Suspect]
     Active Substance: ECULIZUMAB
     Dosage: 900 MG, Q2W
     Route: 065
  2. SOLIRIS [Suspect]
     Active Substance: ECULIZUMAB
     Dosage: 1200 MG, Q2W
     Route: 065
  3. SOLIRIS [Suspect]
     Active Substance: ECULIZUMAB
     Indication: PAROXYSMAL NOCTURNAL HAEMOGLOBINURIA
     Dosage: UNK
     Route: 065

REACTIONS (15)
  - Blood lactate dehydrogenase increased [Unknown]
  - Pyrexia [Unknown]
  - Red cell distribution width increased [Unknown]
  - Red blood cell count decreased [Unknown]
  - Haematocrit decreased [Unknown]
  - Inappropriate schedule of drug administration [Recovered/Resolved]
  - Mean cell volume increased [Unknown]
  - Haemolysis [Unknown]
  - Chromaturia [Unknown]
  - Mean cell haemoglobin increased [Unknown]
  - Headache [Unknown]
  - Blood urine present [Unknown]
  - Neutrophil count decreased [Unknown]
  - Haematuria [Unknown]
  - Back pain [Unknown]

NARRATIVE: CASE EVENT DATE: 20180123
